FAERS Safety Report 21823503 (Version 1)
Quarter: 2023Q1

REPORT INFORMATION
  Report Type: Spontaneous
  Country: US (occurrence: US)
  Receive Date: 20230105
  Receipt Date: 20230105
  Transmission Date: 20230418
  Serious: No
  Sender: FDA-Public Use
  Company Number: US-Covis Pharma GmbH-2022COV22690

PATIENT
  Age: 50 Year
  Sex: Male

DRUGS (1)
  1. TUDORZA PRESSAIR [Suspect]
     Active Substance: ACLIDINIUM BROMIDE
     Indication: Asthma
     Dosage: 60 ACTUATION, 400MCG, ORAL INHALATION, 2 PUFFS DAILY (1 IN THE MORNING, 1 AT NIGHT)

REACTIONS (2)
  - Product dose omission issue [Unknown]
  - Off label use [Unknown]
